FAERS Safety Report 8419564 (Version 3)
Quarter: 2013Q4

REPORT INFORMATION
  Report Type: Spontaneous
  Country: US (occurrence: US)
  Receive Date: 20120221
  Receipt Date: 20131113
  Transmission Date: 20140711
  Serious: Yes (Other)
  Sender: FDA-Public Use
  Company Number: US-ASTRAZENECA-2012SE10577

PATIENT
  Age: 57 Year
  Sex: Female
  Weight: 87.1 kg

DRUGS (4)
  1. CRESTOR [Suspect]
     Indication: BLOOD CHOLESTEROL INCREASED
     Route: 048
  2. CRESTOR [Suspect]
     Indication: BLOOD CHOLESTEROL INCREASED
     Dosage: EVERY OTHER DAY
     Route: 048
     Dates: start: 201310
  3. SLEEP MEDICATION [Concomitant]
  4. THYROID MEDICATION [Concomitant]

REACTIONS (3)
  - Cataract [Unknown]
  - Visual impairment [Unknown]
  - Intentional drug misuse [Not Recovered/Not Resolved]
